FAERS Safety Report 6490729-6 (Version None)
Quarter: 2009Q4

REPORT INFORMATION
  Report Type: 
  Country: None (occurrence: None)
  Receive Date: 20091211
  Receipt Date: 20091203
  Transmission Date: 20100525
  Serious: Yes (Hospitalization, Other)
  Sender: FDA-Public Use
  Company Number: B0613657A

PATIENT
  Age: 44 Year
  Sex: Male

DRUGS (4)
  1. COMBIVIR [Suspect]
     Indication: HIV INFECTION
     Dosage: 1UNIT TWICE PER DAY
     Route: 048
     Dates: start: 20080101, end: 20081110
  2. REYATAZ [Suspect]
     Indication: HIV INFECTION
     Dosage: 200MG TWICE PER DAY
     Route: 048
     Dates: start: 20080101, end: 20081110
  3. SEPTRIN FORTE [Suspect]
     Dosage: 1UNIT PER DAY
     Route: 048
     Dates: start: 20080101, end: 20081110
  4. METHADONE HCL [Concomitant]
     Route: 048

REACTIONS (1)
  - HEPATITIS CHOLESTATIC [None]
